FAERS Safety Report 16382731 (Version 1)
Quarter: 2019Q2

REPORT INFORMATION
  Report Type: Spontaneous
  Country: AU (occurrence: AU)
  Receive Date: 20190603
  Receipt Date: 20190603
  Transmission Date: 20190711
  Serious: Yes (Other)
  Sender: FDA-Public Use
  Company Number: AU-009507513-1905AUS011930

PATIENT
  Age: 65 Year
  Sex: Female

DRUGS (3)
  1. PANTOPRAZOLE [Concomitant]
     Active Substance: PANTOPRAZOLE
  2. EZETROL [Suspect]
     Active Substance: EZETIMIBE
     Dosage: 10 MILLIGRAM
     Dates: start: 20180707, end: 20180715
  3. ROSUVASTATIN. [Suspect]
     Active Substance: ROSUVASTATIN
     Dosage: 5 MILLIGRAM
     Dates: start: 20180613, end: 20180707

REACTIONS (4)
  - Fatigue [Recovered/Resolved]
  - Haematuria [Recovered/Resolved]
  - Feeling abnormal [Recovered/Resolved]
  - Malaise [Recovered/Resolved]
